FAERS Safety Report 6411655-4 (Version None)
Quarter: 2009Q4

REPORT INFORMATION
  Report Type: 
  Country: None (occurrence: None)
  Receive Date: 20091023
  Receipt Date: 20091012
  Transmission Date: 20100525
  Serious: Yes (Death, Hospitalization)
  Sender: FDA-Public Use
  Company Number: PT-ROCHE-656309

PATIENT
  Sex: Female
  Weight: 50 kg

DRUGS (2)
  1. XELODA [Suspect]
     Dosage: DOSE REPORTED AS 2500 MG/M2 PER DAY. FREQUENCY REPORTED AS DURING 14 DAYS.
     Route: 048
     Dates: start: 20090821, end: 20090904
  2. SPIROLACTONE [Concomitant]
     Dosage: IN THE MORNING
     Route: 048

REACTIONS (5)
  - DERMATITIS [None]
  - DISEASE PROGRESSION [None]
  - FEBRILE NEUTROPENIA [None]
  - MUCOSAL INFLAMMATION [None]
  - OEDEMA PERIPHERAL [None]
